FAERS Safety Report 14026053 (Version 4)
Quarter: 2019Q4

REPORT INFORMATION
  Report Type: Spontaneous
  Country: US (occurrence: US)
  Receive Date: 20170929
  Receipt Date: 20191210
  Transmission Date: 20200122
  Serious: Yes (Other)
  Sender: FDA-Public Use
  Company Number: US-ELI_LILLY_AND_COMPANY-US201709007361

PATIENT
  Age: 67 Year
  Sex: Male

DRUGS (10)
  1. CIALIS [Suspect]
     Active Substance: TADALAFIL
     Indication: ERECTILE DYSFUNCTION
     Dosage: 20 MG, OTHER THREE TIMES A MONTH
     Route: 065
     Dates: start: 20071119, end: 20090908
  2. VIAGRA [Suspect]
     Active Substance: SILDENAFIL CITRATE
     Dosage: 100 MG, OTHER THREE TIMES A MONTH
     Route: 065
     Dates: start: 20150921, end: 20160617
  3. CIALIS [Suspect]
     Active Substance: TADALAFIL
     Dosage: 20 MG, OTHER THREE TIMES A MONTH
     Route: 065
     Dates: start: 20121001, end: 20150316
  4. FLOMAX RELIEF [Concomitant]
     Active Substance: TAMSULOSIN HYDROCHLORIDE
     Indication: BENIGN PROSTATIC HYPERPLASIA
     Dosage: 0.4 MG, DAILY
     Dates: start: 20140912, end: 20161219
  5. METFORMIN [Concomitant]
     Active Substance: METFORMIN HYDROCHLORIDE
     Indication: DIABETES MELLITUS
     Dosage: 500 MG
     Dates: start: 20160915
  6. HYDROCHLOROTHIAZIDE AND LISINOPRIL [Concomitant]
     Active Substance: HYDROCHLOROTHIAZIDE\LISINOPRIL
     Indication: HYPERTENSION
  7. VIAGRA [Suspect]
     Active Substance: SILDENAFIL CITRATE
     Indication: ERECTILE DYSFUNCTION
     Dosage: 50 MG, OTHER THREE TIMES A MONTH
     Route: 065
     Dates: start: 20150601, end: 20150701
  8. DOXAZOSIN MESYLATE. [Concomitant]
     Active Substance: DOXAZOSIN MESYLATE
     Indication: BENIGN PROSTATIC HYPERPLASIA
     Dosage: 4 MG, DAILY
     Dates: start: 20121001
  9. FINASTERIDE. [Concomitant]
     Active Substance: FINASTERIDE
     Indication: BENIGN PROSTATIC HYPERPLASIA
     Dosage: 5 MG
     Dates: start: 20090426
  10. CIALIS [Suspect]
     Active Substance: TADALAFIL
     Dosage: 20 MG, OTHER THREE TIME A MONTH
     Route: 065
     Dates: start: 20090929, end: 20120820

REACTIONS (1)
  - Malignant melanoma [Unknown]

NARRATIVE: CASE EVENT DATE: 20130911
